FAERS Safety Report 5878736-5 (Version None)
Quarter: 2008Q3

REPORT INFORMATION
  Report Type: 
  Country: None (occurrence: None)
  Receive Date: 20080910
  Receipt Date: 20080905
  Transmission Date: 20090109
  Serious: Yes (Other)
  Sender: FDA-Public Use
  Company Number: 2008SP014218

PATIENT
  Age: 45 Year
  Sex: Male

DRUGS (5)
  1. PEG-INTRON [Suspect]
     Indication: HEPATITIS C
     Dosage: 80 MCG; ;SC
     Route: 058
     Dates: start: 20080502
  2. RIBAVIRIN [Suspect]
     Indication: HEPATITIS C
     Dosage: 800 MG; QD;PO
     Route: 048
     Dates: start: 20080502
  3. ASPIRIN [Concomitant]
  4. ECHINACEA [Concomitant]
  5. ZESTORETIC [Concomitant]

REACTIONS (7)
  - ASTHENIA [None]
  - DEHYDRATION [None]
  - FATIGUE [None]
  - MIGRAINE [None]
  - NOCTURIA [None]
  - VOMITING [None]
  - WEIGHT INCREASED [None]
